FAERS Safety Report 22842528 (Version 2)
Quarter: 2023Q4

REPORT INFORMATION
  Report Type: Spontaneous
  Country: CN (occurrence: CN)
  Receive Date: 20230821
  Receipt Date: 20231017
  Transmission Date: 20240110
  Serious: Yes (Other)
  Sender: FDA-Public Use
  Company Number: CN-AstraZeneca-2023-2302

PATIENT

DRUGS (2)
  1. GOSERELIN [Suspect]
     Active Substance: GOSERELIN
     Indication: Prostate cancer
     Dosage: UNK
     Route: 058
  2. ZOLADEX [Suspect]
     Active Substance: GOSERELIN ACETATE
     Indication: Prostate cancer
     Dosage: UNK
     Route: 065

REACTIONS (3)
  - Paralysis [Unknown]
  - Device deployment issue [Unknown]
  - Product use issue [Unknown]
